FAERS Safety Report 12675573 (Version 1)
Quarter: 2016Q3

REPORT INFORMATION
  Report Type: Spontaneous
  Country: US (occurrence: None)
  Receive Date: 20160822
  Receipt Date: 20160822
  Transmission Date: 20161109
  Serious: Yes (Disabling)
  Sender: FDA-Public Use
  Company Number: None

PATIENT
  Age: 68 Year
  Sex: Female
  Weight: 53.52 kg

DRUGS (1)
  1. LATANOPROST 0.005% EYE DROPS, SUBSTITUED FOR XALATAN 0.005% [Suspect]
     Active Substance: LATANOPROST
     Indication: GLAUCOMA
     Dosage: 1 DROP EACH EYE BEDTIME INJECTED IN EYES
     Dates: start: 20141205, end: 20160721

REACTIONS (6)
  - Dry mouth [None]
  - Breath odour [None]
  - Swollen tongue [None]
  - Gastric disorder [None]
  - Nausea [None]
  - Glossodynia [None]

NARRATIVE: CASE EVENT DATE: 20160721
